FAERS Safety Report 4353891-7 (Version None)
Quarter: 2004Q2

REPORT INFORMATION
  Report Type: 
  Country: None (occurrence: None)
  Receive Date: 20040506
  Receipt Date: 20040407
  Transmission Date: 20050107
  Serious: Yes (Death)
  Sender: FDA-Public Use
  Company Number: PHRM2004FR01466

PATIENT
  Age: 58 Year
  Sex: Female

DRUGS (6)
  1. TAREG [Suspect]
     Indication: HYPERTENSION
     Dosage: 1 DF, QD
     Route: 048
  2. LASIX [Suspect]
     Indication: HYPERTENSION
     Dosage: 40 MG, QD
     Route: 048
  3. CORDARONE [Suspect]
     Indication: ARRHYTHMIA SUPRAVENTRICULAR
     Dosage: 200 MG, QD
     Route: 048
  4. CALCIPARINE [Concomitant]
     Route: 042
     Dates: start: 20020901
  5. PREVISCAN [Concomitant]
     Dosage: 20 MG, DAILY
     Route: 048
  6. PREVISCAN [Concomitant]
     Dosage: 25 MG, DAY
     Route: 048
     Dates: end: 20020831

REACTIONS (10)
  - ACTIVATED PARTIAL THROMBOPLASTIN TIME PROLONGED [None]
  - BRAIN SCAN ABNORMAL [None]
  - EXTENSOR PLANTAR RESPONSE [None]
  - EXTRAPYRAMIDAL DISORDER [None]
  - GLASGOW COMA SCALE ABNORMAL [None]
  - HAEMORRHAGE INTRACRANIAL [None]
  - HYDROCEPHALUS [None]
  - INTUBATION [None]
  - THROMBOCYTOPENIA [None]
  - VENTRICULAR DRAINAGE [None]
